FAERS Safety Report 15462966 (Version 3)
Quarter: 2018Q4

REPORT INFORMATION
  Report Type: Spontaneous
  Country: US (occurrence: US)
  Receive Date: 20181004
  Receipt Date: 20181217
  Transmission Date: 20190204
  Serious: No
  Sender: FDA-Public Use
  Company Number: US-PFIZER INC-2018395544

PATIENT
  Age: 14 Year
  Sex: Male

DRUGS (1)
  1. GENOTROPIN [Suspect]
     Active Substance: SOMATROPIN
     Indication: GROWTH HORMONE DEFICIENCY
     Dosage: 2 MG, DAILY
     Dates: start: 2018

REACTIONS (8)
  - Blood thyroid stimulating hormone decreased [Unknown]
  - Mean cell haemoglobin concentration decreased [Unknown]
  - Anion gap increased [Unknown]
  - Red blood cell count increased [Unknown]
  - Blood glucose increased [Unknown]
  - Blood creatinine decreased [Unknown]
  - Glycosylated haemoglobin increased [Unknown]
  - Insulin-like growth factor decreased [Unknown]

NARRATIVE: CASE EVENT DATE: 20180821
